FAERS Safety Report 18278460 (Version 1)
Quarter: 2020Q3

REPORT INFORMATION
  Report Type: Spontaneous
  Country: CA (occurrence: CA)
  Receive Date: 20200917
  Receipt Date: 20200917
  Transmission Date: 20201103
  Serious: Yes (Hospitalization)
  Sender: FDA-Public Use
  Company Number: CA-LUPIN PHARMACEUTICALS INC.-2020-04945

PATIENT
  Age: 70 Year
  Sex: Male

DRUGS (7)
  1. ATORVASTATIN CALCIUM. [Suspect]
     Active Substance: ATORVASTATIN CALCIUM
     Indication: HYPERLIPIDAEMIA
     Dosage: UNK
     Route: 065
  2. ACETYLSALICYLIC ACID [Concomitant]
     Active Substance: ASPIRIN
     Indication: CORONARY ARTERY DISEASE
     Dosage: UNK
     Route: 065
  3. FENTANYL. [Concomitant]
     Active Substance: FENTANYL
     Indication: ENDOTRACHEAL INTUBATION
     Dosage: 100 MICROGRAM
     Route: 042
  4. RAMIPRIL. [Concomitant]
     Active Substance: RAMIPRIL
     Indication: CORONARY ARTERY DISEASE
     Dosage: UNK
     Route: 065
  5. METOPROLOL. [Concomitant]
     Active Substance: METOPROLOL
     Indication: HYPERTENSION
     Dosage: UNK
     Route: 065
  6. PROPOFOL. [Concomitant]
     Active Substance: PROPOFOL
     Indication: ENDOTRACHEAL INTUBATION
     Dosage: 180 MILLIGRAM
     Route: 042
  7. SUCCINYLCHOLINE CHLORIDE. [Suspect]
     Active Substance: SUCCINYLCHOLINE CHLORIDE
     Indication: ENDOTRACHEAL INTUBATION
     Dosage: 80 MILLIGRAM
     Route: 042

REACTIONS (1)
  - Myalgia [Recovered/Resolved]
